FAERS Safety Report 18444528 (Version 1)
Quarter: 2020Q4

REPORT INFORMATION
  Report Type: Spontaneous
  Country: GR (occurrence: GR)
  Receive Date: 20201030
  Receipt Date: 20201030
  Transmission Date: 20210114
  Serious: Yes (Hospitalization, Other)
  Sender: FDA-Public Use
  Company Number: NVSC2020GR287900

PATIENT
  Age: 68 Year
  Sex: Female

DRUGS (4)
  1. ZYKADIA [Suspect]
     Active Substance: CERITINIB
     Dosage: 600 MG, QD (TOLERABLE DOSE)
     Route: 065
  2. ZYKADIA [Suspect]
     Active Substance: CERITINIB
     Dosage: 300 MG
     Route: 065
  3. ZYKADIA [Suspect]
     Active Substance: CERITINIB
     Indication: LUNG ADENOCARCINOMA
     Dosage: 450 MG, QD (FASTING)
     Route: 065
  4. ZYKADIA [Suspect]
     Active Substance: CERITINIB
     Dosage: 450 MG, QD (WITH LOW FAT MEAL DAILY)
     Route: 065

REACTIONS (5)
  - Diarrhoea [Unknown]
  - Vomiting [Unknown]
  - Enteritis [Unknown]
  - Abdominal pain [Unknown]
  - Nausea [Unknown]
